FAERS Safety Report 24745222 (Version 2)
Quarter: 2025Q1

REPORT INFORMATION
  Report Type: Spontaneous
  Country: JP (occurrence: JP)
  Receive Date: 20241217
  Receipt Date: 20250113
  Transmission Date: 20250409
  Serious: Yes (Death, Other)
  Sender: ALEXION PHARMACEUTICALS
  Company Number: JP-ASTRAZENECA-240142055_064320_P_1

PATIENT
  Age: 73 Year

DRUGS (12)
  1. ANDEXXA [Suspect]
     Active Substance: ANDEXANET ALFA
     Indication: Putamen haemorrhage
  2. ANDEXXA [Suspect]
     Active Substance: ANDEXANET ALFA
     Route: 042
  3. ANDEXXA [Suspect]
     Active Substance: ANDEXANET ALFA
  4. ANDEXXA [Suspect]
     Active Substance: ANDEXANET ALFA
     Route: 042
  5. ANDEXXA [Suspect]
     Active Substance: ANDEXANET ALFA
  6. ANDEXXA [Suspect]
     Active Substance: ANDEXANET ALFA
     Route: 042
  7. ANDEXXA [Suspect]
     Active Substance: ANDEXANET ALFA
  8. ANDEXXA [Suspect]
     Active Substance: ANDEXANET ALFA
     Route: 042
  9. EDOXABAN TOSYLATE [Concomitant]
     Active Substance: EDOXABAN TOSYLATE
     Route: 048
  10. EDOXABAN TOSYLATE [Concomitant]
     Active Substance: EDOXABAN TOSYLATE
  11. EDOXABAN [Concomitant]
     Active Substance: EDOXABAN
     Route: 048
  12. EDOXABAN [Concomitant]
     Active Substance: EDOXABAN

REACTIONS (1)
  - Putamen haemorrhage [Fatal]
